FAERS Safety Report 6972874-1 (Version None)
Quarter: 2010Q3

REPORT INFORMATION
  Report Type: 
  Country: None (occurrence: None)
  Receive Date: 20100909
  Receipt Date: 20100517
  Transmission Date: 20110219
  Serious: No
  Sender: FDA-Public Use
  Company Number: US-KINGPHARMUSA00001-K201000621

PATIENT
  Age: 46 Year
  Sex: Female

DRUGS (1)
  1. EMBEDA [Suspect]
     Indication: BACK PAIN
     Dosage: 60 MG, UNK

REACTIONS (1)
  - DRUG INEFFECTIVE [None]
